FAERS Safety Report 12912916 (Version 1)
Quarter: 2016Q4

REPORT INFORMATION
  Report Type: Spontaneous
  Country: US (occurrence: US)
  Receive Date: 20161104
  Receipt Date: 20161104
  Transmission Date: 20170207
  Serious: Yes (Hospitalization)
  Sender: FDA-Public Use
  Company Number: US-ELI_LILLY_AND_COMPANY-US201610008463

PATIENT
  Age: 65 Year
  Sex: Female

DRUGS (1)
  1. HUMALOG [Suspect]
     Active Substance: INSULIN LISPRO
     Indication: DIABETES MELLITUS
     Dosage: 1 U, PRN
     Route: 065
     Dates: start: 201608

REACTIONS (6)
  - Neuropathy peripheral [Unknown]
  - Tremor [Unknown]
  - Accidental overdose [Unknown]
  - Allergy to chemicals [Unknown]
  - Hypersensitivity [Unknown]
  - Blood glucose increased [Unknown]

NARRATIVE: CASE EVENT DATE: 201608
